FAERS Safety Report 24260792 (Version 1)
Quarter: 2024Q3

REPORT INFORMATION
  Report Type: Spontaneous
  Country: US (occurrence: US)
  Receive Date: 20240828
  Receipt Date: 20240828
  Transmission Date: 20241017
  Serious: Yes (Other)
  Sender: BLUEPRINT MEDICINES
  Company Number: US-ROCHE-3183224

PATIENT

DRUGS (1)
  1. PRALSETINIB [Suspect]
     Active Substance: PRALSETINIB
     Indication: Lung adenocarcinoma
     Dosage: UNK

REACTIONS (3)
  - Disease progression [Unknown]
  - Drug resistance [Unknown]
  - Small cell lung cancer [Unknown]
